FAERS Safety Report 5454630-9 (Version None)
Quarter: 2007Q3

REPORT INFORMATION
  Report Type: 
  Country: None (occurrence: None)
  Receive Date: 20070917
  Receipt Date: 20070905
  Transmission Date: 20080115
  Serious: Yes (Other)
  Sender: FDA-Public Use
  Company Number: US-PFIZER INC-2007074796

PATIENT
  Sex: Male

DRUGS (2)
  1. EXUBERA [Suspect]
  2. LANTUS [Suspect]

REACTIONS (2)
  - DYSPNOEA [None]
  - WHEEZING [None]
